FAERS Safety Report 11803778 (Version 1)
Quarter: 2015Q4

REPORT INFORMATION
  Report Type: Report from Study
  Country: BR (occurrence: BR)
  Receive Date: 20151204
  Receipt Date: 20151204
  Transmission Date: 20160305
  Serious: Yes (Death, Hospitalization)
  Sender: FDA-Public Use
  Company Number: PHHY2015BR158809

PATIENT
  Sex: Female
  Weight: 40 kg

DRUGS (1)
  1. EXELON PATCH [Suspect]
     Active Substance: RIVASTIGMINE
     Indication: COGNITIVE DISORDER
     Dosage: 1 DF, QD (1 PATCH)
     Route: 062
     Dates: start: 201508, end: 20151011

REACTIONS (11)
  - Pulmonary sepsis [Fatal]
  - Vascular dementia [Fatal]
  - Ischaemic cardiomyopathy [Fatal]
  - General physical health deterioration [Unknown]
  - Heart rate decreased [Fatal]
  - Pneumonia [Fatal]
  - Coma [Fatal]
  - Multi-organ failure [Fatal]
  - Movement disorder [Not Recovered/Not Resolved]
  - Feeding disorder [Fatal]
  - Septic shock [Fatal]
